FAERS Safety Report 7964620-X (Version None)
Quarter: 2011Q4

REPORT INFORMATION
  Report Type: 
  Country: None (occurrence: None)
  Receive Date: 20111121
  Receipt Date: 20110722
  Transmission Date: 20120403
  Serious: No
  Sender: FDA-Public Use
  Company Number: 1000022418

PATIENT
  Age: 57 Year
  Sex: Female

DRUGS (6)
  1. ARIMIDEX [Concomitant]
  2. VIIBRYD [Suspect]
     Indication: DEPRESSION
     Dosage: 10 MG (10 MG, 1 IN 1 D), ORAL 20 MG (20 MG, 1 IN 1 D), ORAL
     Route: 048
     Dates: start: 20110721
  3. VIIBRYD [Suspect]
     Indication: DEPRESSION
     Dosage: 10 MG (10 MG, 1 IN 1 D), ORAL 20 MG (20 MG, 1 IN 1 D), ORAL
     Route: 048
     Dates: start: 20110714, end: 20110720
  4. LITHOBID (LITHIUM CARBONATE) (LITHIUM CARBONATE) [Concomitant]
  5. SYNTHROID (LEVOTHYROXINE SODIUM) (LEVOTHYROXINE SODIUM) [Concomitant]
  6. LAMICTAL [Concomitant]

REACTIONS (4)
  - IRRITABILITY [None]
  - NAUSEA [None]
  - CRYING [None]
  - VERTIGO [None]
